FAERS Safety Report 7191517-8 (Version None)
Quarter: 2010Q4

REPORT INFORMATION
  Report Type: 
  Country: None (occurrence: None)
  Receive Date: 20101223
  Receipt Date: 20101129
  Transmission Date: 20110411
  Serious: Yes (Hospitalization)
  Sender: FDA-Public Use
  Company Number: US-BAYER-2010-003078

PATIENT
  Sex: Female
  Weight: 88 kg

DRUGS (5)
  1. YAZ [Suspect]
     Dosage: UNK
     Dates: start: 20100818, end: 20101001
  2. LOVENOX [Concomitant]
  3. WARFARIN [Concomitant]
  4. PERCOCET [Concomitant]
  5. COUMADIN [Concomitant]

REACTIONS (4)
  - HEADACHE [None]
  - LABORATORY TEST ABNORMAL [None]
  - PULMONARY EMBOLISM [None]
  - URINE KETONE BODY PRESENT [None]
